FAERS Safety Report 12323687 (Version 1)
Quarter: 2016Q2

REPORT INFORMATION
  Report Type: Spontaneous
  Country: US (occurrence: US)
  Receive Date: 20160502
  Receipt Date: 20160502
  Transmission Date: 20160815
  Serious: No
  Sender: FDA-Public Use
  Company Number: US-TARO-2015TAR00320

PATIENT
  Sex: Female

DRUGS (1)
  1. CLINDAMYCIN PHOSPHATE TOPICAL SOLUTION USP 1% [Suspect]
     Active Substance: CLINDAMYCIN PHOSPHATE
     Indication: ACNE
     Dosage: UNK UNK, 2X/DAY
     Route: 061

REACTIONS (2)
  - Dermatitis acneiform [Recovered/Resolved]
  - Product quality issue [Recovered/Resolved]
